FAERS Safety Report 17451563 (Version 1)
Quarter: 2020Q1

REPORT INFORMATION
  Report Type: Spontaneous
  Country: US (occurrence: US)
  Receive Date: 20200224
  Receipt Date: 20200224
  Transmission Date: 20200409
  Serious: No
  Sender: FDA-Public Use
  Company Number: US-SA-2020SA047299

PATIENT
  Age: 20 Year
  Sex: Female

DRUGS (7)
  1. DUPIXENT [Suspect]
     Active Substance: DUPILUMAB
     Indication: DERMATITIS
     Dosage: 300 MG, QOW
     Route: 058
     Dates: start: 20180102
  2. CICLOPIROX. [Concomitant]
     Active Substance: CICLOPIROX
  3. CLOBETASOL [Concomitant]
     Active Substance: CLOBETASOL
  4. ALBUTEROL [SALBUTAMOL] [Concomitant]
     Active Substance: ALBUTEROL
  5. PREDNISONE. [Concomitant]
     Active Substance: PREDNISONE
  6. AZITHROMYCIN ANHYDROUS. [Concomitant]
     Active Substance: AZITHROMYCIN ANHYDROUS
  7. PIMECROLIMUS. [Concomitant]
     Active Substance: PIMECROLIMUS

REACTIONS (2)
  - Dermatitis [Not Recovered/Not Resolved]
  - Periorbital swelling [Not Recovered/Not Resolved]

NARRATIVE: CASE EVENT DATE: 20200201
